FAERS Safety Report 19849954 (Version 15)
Quarter: 2023Q2

REPORT INFORMATION
  Report Type: Report from Study
  Country: US (occurrence: US)
  Receive Date: 20210918
  Receipt Date: 20230627
  Transmission Date: 20230722
  Serious: Yes (Other)
  Sender: FDA-Public Use
  Company Number: US-TAKEDA-2021TUS056372

PATIENT
  Age: 83 Year
  Sex: Female
  Weight: 75 kg

DRUGS (13)
  1. BRIGATINIB [Suspect]
     Active Substance: BRIGATINIB
     Indication: Lung neoplasm malignant
     Dosage: 60 MILLIGRAM, QD
     Route: 048
     Dates: start: 20210719, end: 20230329
  2. BRIGATINIB [Suspect]
     Active Substance: BRIGATINIB
     Indication: Lung neoplasm malignant
     Dosage: 90 MILLIGRAM, QD
     Route: 048
     Dates: start: 20210902
  3. BRIGATINIB [Suspect]
     Active Substance: BRIGATINIB
     Dosage: 30 MILLIGRAM, BID
     Route: 048
  4. BRIGATINIB [Suspect]
     Active Substance: BRIGATINIB
     Dosage: 60 MILLIGRAM, QD
     Route: 048
  5. LOSARTAN [Suspect]
     Active Substance: LOSARTAN
     Indication: Hypertension
     Dosage: 25 MILLIGRAM
     Route: 065
  6. LOSARTAN [Suspect]
     Active Substance: LOSARTAN
     Dosage: 50 MILLIGRAM, QD
     Route: 065
  7. JANUVIA [Concomitant]
     Active Substance: SITAGLIPTIN PHOSPHATE
     Indication: Diabetes mellitus
     Dosage: 50 MILLIGRAM, QD
     Route: 065
  8. JANUVIA [Concomitant]
     Active Substance: SITAGLIPTIN PHOSPHATE
     Dosage: 100 MILLIGRAM
     Route: 065
  9. OMEPRAZOLE [Concomitant]
     Active Substance: OMEPRAZOLE
     Indication: Hypertension
     Dosage: 20 MILLIGRAM
     Route: 065
  10. NORTRIPTYLINE [Concomitant]
     Active Substance: NORTRIPTYLINE
     Indication: Diabetes mellitus
     Dosage: 10 MILLIGRAM
     Route: 065
  11. ASPIRIN [Concomitant]
     Active Substance: ASPIRIN
     Dosage: 81 MILLIGRAM
     Route: 065
  12. CLARITIN [Concomitant]
     Active Substance: LORATADINE
     Dosage: UNK
  13. MATZIM LA [Concomitant]
     Active Substance: DILTIAZEM HYDROCHLORIDE
     Dosage: 180 MILLIGRAM, QD
     Route: 065

REACTIONS (25)
  - Hiatus hernia [Unknown]
  - Renal impairment [Unknown]
  - Diverticulitis [Not Recovered/Not Resolved]
  - Gait disturbance [Unknown]
  - Malaise [Unknown]
  - Nerve injury [Unknown]
  - Skin exfoliation [Not Recovered/Not Resolved]
  - Drug intolerance [Unknown]
  - Feeling abnormal [Unknown]
  - Hypophagia [Unknown]
  - Hyperhidrosis [Unknown]
  - Weight fluctuation [Unknown]
  - Nervousness [Unknown]
  - Skin mass [Unknown]
  - Illness [Unknown]
  - Gastrooesophageal reflux disease [Not Recovered/Not Resolved]
  - Memory impairment [Unknown]
  - Pain in extremity [Unknown]
  - Rash [Not Recovered/Not Resolved]
  - Constipation [Not Recovered/Not Resolved]
  - Blood pressure increased [Unknown]
  - Diarrhoea [Unknown]
  - Dizziness [Unknown]
  - Intentional underdose [Unknown]
  - Product dose omission issue [Unknown]

NARRATIVE: CASE EVENT DATE: 20220125
